FAERS Safety Report 8902813 (Version 2)
Quarter: 2013Q2

REPORT INFORMATION
  Report Type: Spontaneous
  Country: US (occurrence: US)
  Receive Date: 20121113
  Receipt Date: 20130412
  Transmission Date: 20140414
  Serious: Yes (Life-Threatening, Hospitalization, Disabling, Other)
  Sender: FDA-Public Use
  Company Number: US-009507513-1103USA00415

PATIENT
  Sex: Female
  Weight: 87.98 kg

DRUGS (17)
  1. JANUVIA [Suspect]
     Indication: TYPE 2 DIABETES MELLITUS
     Dosage: 50 MG, QD
     Route: 048
     Dates: start: 201005, end: 20100616
  2. JANUVIA [Suspect]
     Dosage: 50 MG, QD
     Route: 048
     Dates: start: 201008, end: 20100904
  3. ZOCOR [Suspect]
     Indication: PRODUCT USED FOR UNKNOWN INDICATION
     Dosage: 20 MG, HS
     Route: 048
     Dates: end: 201009
  4. ZANAFLEX [Suspect]
     Indication: PRODUCT USED FOR UNKNOWN INDICATION
     Dosage: 4 MG, HS
     Route: 048
     Dates: end: 20100915
  5. PRINIVIL [Suspect]
     Indication: ESSENTIAL HYPERTENSION
     Dosage: 2.5 MG, QD
     Route: 048
     Dates: start: 20100412, end: 20101117
  6. PRINIVIL [Suspect]
     Dosage: 5 MG, QD
     Route: 048
     Dates: start: 20101117, end: 20101213
  7. PRINIVIL [Suspect]
     Dosage: 10 MG, QD
     Route: 048
     Dates: start: 20101213
  8. CENTRUM SILVER [Concomitant]
     Indication: PRODUCT USED FOR UNKNOWN INDICATION
     Dosage: 1 DF, QD
     Route: 048
  9. ASPIRIN [Concomitant]
     Indication: PRODUCT USED FOR UNKNOWN INDICATION
     Dosage: 81 MG, QD
     Route: 048
  10. PLAVIX [Concomitant]
     Indication: PRODUCT USED FOR UNKNOWN INDICATION
     Dosage: 75 MG, QD
     Route: 048
  11. EFFEXOR [Concomitant]
     Indication: DEPRESSION
     Dosage: 75 MG, BID
     Route: 048
     Dates: end: 20121017
  12. EFFEXOR [Concomitant]
     Dosage: 75 MG, TID
     Route: 048
     Dates: start: 20121017
  13. TOPROL XL TABLETS [Concomitant]
     Indication: PRODUCT USED FOR UNKNOWN INDICATION
     Dosage: 50 MG, QD
     Route: 048
  14. GLUCOPHAGE XR [Concomitant]
     Indication: PRODUCT USED FOR UNKNOWN INDICATION
     Dosage: UNK
     Route: 048
     Dates: end: 20100616
  15. GLUCOPHAGE XR [Concomitant]
     Dosage: 500 MG, 1 IN AM, 2 IN PM
     Route: 048
     Dates: start: 20100616, end: 20100913
  16. GLUCOPHAGE XR [Concomitant]
     Dosage: 2-500 MG TABLETS, BID
     Route: 048
     Dates: start: 20100913
  17. PERCOCET [Concomitant]
     Indication: PRODUCT USED FOR UNKNOWN INDICATION

REACTIONS (36)
  - Hepatitis toxic [Not Recovered/Not Resolved]
  - Biopsy liver [Unknown]
  - Drug-induced liver injury [Recovering/Resolving]
  - Hepatitis viral [Recovering/Resolving]
  - Dizziness [Recovered/Resolved]
  - Syncope [Unknown]
  - Anaemia [Recovered/Resolved]
  - Diabetic complication [Unknown]
  - Hepatic failure [Unknown]
  - Epstein-Barr virus infection [Unknown]
  - Hypotension [Recovered/Resolved]
  - Cough [Unknown]
  - Diabetes mellitus inadequate control [Not Recovered/Not Resolved]
  - Upper-airway cough syndrome [Not Recovered/Not Resolved]
  - Lipoma [Unknown]
  - Parosmia [Unknown]
  - Muscular weakness [Unknown]
  - Dystonia [Unknown]
  - Ear discomfort [Unknown]
  - Nasal congestion [Unknown]
  - Chest pain [Unknown]
  - Urinary tract infection [Unknown]
  - Haemorrhoids [Unknown]
  - Hypertension [Recovering/Resolving]
  - Urinary tract infection [Unknown]
  - Diarrhoea [Unknown]
  - Wheezing [Unknown]
  - Subdural haematoma [Unknown]
  - Hypersensitivity [Unknown]
  - Depression [Unknown]
  - Therapeutic response decreased [Unknown]
  - Drug hypersensitivity [Not Recovered/Not Resolved]
  - Urticaria [Unknown]
  - Dyspnoea [Unknown]
  - Hyperhidrosis [Unknown]
  - Nausea [Unknown]
